FAERS Safety Report 4964282-X (Version None)
Quarter: 2006Q2

REPORT INFORMATION
  Report Type: 
  Country: None (occurrence: None)
  Receive Date: 20060406
  Receipt Date: 20060126
  Transmission Date: 20061013
  Serious: Yes (Death, Life-Threatening, Hospitalization)
  Sender: FDA-Public Use
  Company Number: US-KINGPHARMUSA00001-K200600092

PATIENT
  Age: 81 Year
  Sex: Male

DRUGS (11)
  1. ALTACE [Suspect]
     Dosage: 2.5 MG, UNK
  2. HYDROCHLOROTHIAZIDE [Suspect]
  3. ASS ^CT-ARZNEIMITTEL^ [Concomitant]
     Dosage: 100 MG, UNK
     Route: 048
     Dates: start: 20050801, end: 20051001
  4. THEOPHYLLINE [Concomitant]
     Dosage: 350 MG, UNK
     Route: 048
     Dates: start: 20050801, end: 20051001
  5. FURESIS [Concomitant]
     Dosage: 80 MG, UNK
     Route: 048
     Dates: start: 20050801, end: 20051001
  6. METOPROLOL SUCCINATE [Concomitant]
     Dosage: 1 TABLET
     Route: 048
     Dates: start: 20050801, end: 20051001
  7. CALCIUM ACETATE [Concomitant]
     Dosage: 3,000 MG, UNK
     Route: 048
     Dates: start: 20050101, end: 20051001
  8. GLURENORM ^BOEHRINGER^ [Concomitant]
     Dosage: 2 TABLETS
     Route: 048
     Dates: start: 20050801, end: 20051001
  9. LERCANIDIPINE [Concomitant]
     Dosage: 10 MG, UNK
     Route: 048
     Dates: start: 20050801, end: 20051001
  10. ZOLADEX [Concomitant]
     Indication: PROSTATE CANCER
     Dates: start: 20050801, end: 20051001
  11. INEGY (EZETIMIBE,SIMVASTATIN) [Concomitant]
     Dosage: 1 TABLET
     Route: 048
     Dates: end: 20051001

REACTIONS (21)
  - ANAPHYLACTOID REACTION [None]
  - APHASIA [None]
  - ARTERIOSCLEROSIS [None]
  - CARDIAC ARREST [None]
  - CARDIAC DISORDER [None]
  - CEREBROVASCULAR ACCIDENT [None]
  - CHEST DISCOMFORT [None]
  - CHOLELITHIASIS [None]
  - CIRCULATORY COLLAPSE [None]
  - DEVICE FAILURE [None]
  - FACIAL PARESIS [None]
  - FALL [None]
  - LOSS OF CONSCIOUSNESS [None]
  - MUSCLE SPASMS [None]
  - MYOCARDIAL INFARCTION [None]
  - NAUSEA [None]
  - PYELONEPHRITIS CHRONIC [None]
  - RESPIRATORY ARREST [None]
  - SYNCOPE [None]
  - TRANSIENT ISCHAEMIC ATTACK [None]
  - VOMITING [None]
